FAERS Safety Report 6493077-3 (Version None)
Quarter: 2009Q4

REPORT INFORMATION
  Report Type: 
  Country: None (occurrence: None)
  Receive Date: 20091211
  Receipt Date: 20091211
  Transmission Date: 20100525
  Serious: Yes (Disabling)
  Sender: FDA-Public Use
  Company Number: None

PATIENT
  Age: 24 Year
  Sex: Female
  Weight: 81.6475 kg

DRUGS (2)
  1. MIRENA [Suspect]
     Dates: start: 20080814, end: 20090711
  2. MIRENA [Suspect]

REACTIONS (2)
  - INFERTILITY FEMALE [None]
  - WEIGHT INCREASED [None]
